FAERS Safety Report 19884615 (Version 1)
Quarter: 2021Q3

REPORT INFORMATION
  Report Type: Spontaneous
  Country: US (occurrence: US)
  Receive Date: 20210924
  Receipt Date: 20210924
  Transmission Date: 20211014
  Serious: Yes (Other)
  Sender: FDA-Public Use
  Company Number: None

PATIENT
  Age: 59 Year
  Sex: Female
  Weight: 83.91 kg

DRUGS (2)
  1. REPATHA [Suspect]
     Active Substance: EVOLOCUMAB
  2. REPATHA [Concomitant]
     Active Substance: EVOLOCUMAB
     Dates: start: 20210908, end: 20210908

REACTIONS (7)
  - Fatigue [None]
  - Pulmonary congestion [None]
  - Myalgia [None]
  - Pyrexia [None]
  - Illness [None]
  - Blood pressure increased [None]
  - Impaired work ability [None]

NARRATIVE: CASE EVENT DATE: 20210908
